FAERS Safety Report 6480523-4 (Version None)
Quarter: 2009Q4

REPORT INFORMATION
  Report Type: 
  Country: None (occurrence: None)
  Receive Date: 20091203
  Receipt Date: 20091123
  Transmission Date: 20100525
  Serious: Yes (Hospitalization, Other)
  Sender: FDA-Public Use
  Company Number: 2009SP037975

PATIENT
  Age: 40 Year
  Sex: Male
  Weight: 129.2752 kg

DRUGS (2)
  1. PEG-INTRON [Suspect]
     Indication: HEPATITIS C
     Dosage: ; SC
     Route: 058
     Dates: start: 20090323
  2. RIBAVIRIN [Suspect]
     Indication: HEPATITIS C
     Dosage: ; PO
     Route: 048
     Dates: start: 20090323

REACTIONS (9)
  - AGGRESSION [None]
  - DIZZINESS [None]
  - HEADACHE [None]
  - HYPOTENSION [None]
  - NEPHROLITHIASIS [None]
  - PAIN [None]
  - PERSONALITY CHANGE [None]
  - SKIN LACERATION [None]
  - WEIGHT DECREASED [None]
